FAERS Safety Report 13982120 (Version 4)
Quarter: 2019Q2

REPORT INFORMATION
  Report Type: Report from Study
  Country: DE (occurrence: DE)
  Receive Date: 20170918
  Receipt Date: 20190510
  Transmission Date: 20190711
  Serious: Yes (Death, Other)
  Sender: FDA-Public Use
  Company Number: PHHY2017DE134574

PATIENT
  Age: 59 Year
  Sex: Male
  Weight: 107 kg

DRUGS (10)
  1. TAFINLAR [Suspect]
     Active Substance: DABRAFENIB MESYLATE
     Indication: METASTATIC MALIGNANT MELANOMA
     Dosage: 75 MG, BID
     Route: 048
     Dates: start: 20170811, end: 20171017
  2. SEEBRI BREEZHALER [Concomitant]
     Active Substance: GLYCOPYRROLATE
     Indication: PRODUCT USED FOR UNKNOWN INDICATION
     Dosage: 44 UG, QD
     Route: 048
     Dates: start: 20140101
  3. ASPIRIN. [Concomitant]
     Active Substance: ASPIRIN
     Indication: PRODUCT USED FOR UNKNOWN INDICATION
     Dosage: 100 MG, QD
     Route: 048
     Dates: start: 20130401
  4. RAMIPRIL. [Concomitant]
     Active Substance: RAMIPRIL
     Indication: PRODUCT USED FOR UNKNOWN INDICATION
     Dosage: 5 MG, BID
     Route: 048
     Dates: start: 20130401
  5. METOPROLOL. [Concomitant]
     Active Substance: METOPROLOL
     Indication: PRODUCT USED FOR UNKNOWN INDICATION
     Dosage: 47.5 MG, BID
     Route: 048
     Dates: start: 20170401
  6. AMLODIPINE [Concomitant]
     Active Substance: AMLODIPINE BESYLATE
     Indication: PRODUCT USED FOR UNKNOWN INDICATION
     Dosage: 5 MG, BID
     Route: 048
     Dates: start: 20140101
  7. TRAMETINIB [Suspect]
     Active Substance: TRAMETINIB
     Indication: METASTATIC MALIGNANT MELANOMA
     Dosage: 2 MG, QD
     Route: 048
     Dates: start: 20170812, end: 20171020
  8. DEXAMETHASONE. [Concomitant]
     Active Substance: DEXAMETHASONE
     Dosage: 0.5 MG, QD
     Route: 048
     Dates: start: 20170809, end: 20170811
  9. DEXAMETHASONE. [Concomitant]
     Active Substance: DEXAMETHASONE
     Indication: MALIGNANT MELANOMA
     Dosage: 1 MG, QD
     Route: 048
     Dates: start: 20170809, end: 20170811
  10. PANTOPRAZOL [Concomitant]
     Active Substance: PANTOPRAZOLE SODIUM
     Indication: PRODUCT USED FOR UNKNOWN INDICATION
     Dosage: 40 MG, BID
     Route: 048
     Dates: start: 20170728, end: 20170813

REACTIONS (14)
  - Chorioretinopathy [Recovered/Resolved]
  - Hypertension [Recovered/Resolved]
  - Arthralgia [Recovered/Resolved]
  - Weight decreased [Recovered/Resolved]
  - Fatigue [Recovered/Resolved]
  - Feeling hot [Recovered/Resolved]
  - Feeling cold [Recovered/Resolved]
  - Night sweats [Recovered/Resolved]
  - Vision blurred [Not Recovered/Not Resolved]
  - Metastases to central nervous system [Fatal]
  - Asthenia [Recovered/Resolved]
  - Asthenia [Recovered/Resolved]
  - Dyspnoea exertional [Recovered/Resolved]
  - Decreased appetite [Recovered/Resolved]

NARRATIVE: CASE EVENT DATE: 20170814
